FAERS Safety Report 9224664 (Version 2)
Quarter: 2013Q2

REPORT INFORMATION
  Report Type: Other
  Country: TR (occurrence: TR)
  Receive Date: 20130411
  Receipt Date: 20130416
  Transmission Date: 20140414
  Serious: Yes (Other)
  Sender: FDA-Public Use
  Company Number: TR-BRISTOL-MYERS SQUIBB COMPANY-18759852

PATIENT
  Age: 35 Year
  Sex: Male

DRUGS (1)
  1. MITOMYCIN-C [Suspect]
     Indication: GLAUCOMA TRAUMATIC
     Dosage: MG/ML
     Route: 031

REACTIONS (1)
  - Hypotony of eye [Recovered/Resolved]
